FAERS Safety Report 7006887-0 (Version None)
Quarter: 2010Q3

REPORT INFORMATION
  Report Type: 
  Country: None (occurrence: None)
  Receive Date: 20100922
  Receipt Date: 20100913
  Transmission Date: 20110219
  Serious: Yes (Other)
  Sender: FDA-Public Use
  Company Number: US-ELI_LILLY_AND_COMPANY-US201009003518

PATIENT
  Age: 70 Year
  Sex: Female

DRUGS (3)
  1. HUMALOG [Suspect]
     Indication: TYPE 1 DIABETES MELLITUS
     Dosage: UNK, AS NEEDED
  2. HUMULIN N [Suspect]
     Indication: TYPE 1 DIABETES MELLITUS
  3. LANTUS [Concomitant]

REACTIONS (10)
  - BLOOD GLUCOSE DECREASED [None]
  - DRUG EFFECT DECREASED [None]
  - HEAD INJURY [None]
  - HYPOGLYCAEMIC SEIZURE [None]
  - LOSS OF CONSCIOUSNESS [None]
  - MEMORY IMPAIRMENT [None]
  - NEUROPATHY PERIPHERAL [None]
  - SHOCK HYPOGLYCAEMIC [None]
  - SKIN LACERATION [None]
  - SPINAL FRACTURE [None]
